APPROVED DRUG PRODUCT: MORPHINE SULFATE
Active Ingredient: MORPHINE SULFATE
Strength: 15MG
Dosage Form/Route: TABLET;ORAL
Application: A207270 | Product #001
Applicant: DR REDDYS LABORATORIES SA
Approved: Jan 12, 2022 | RLD: No | RS: No | Type: DISCN